FAERS Safety Report 10745027 (Version 1)
Quarter: 2015Q1

REPORT INFORMATION
  Report Type: Spontaneous
  Country: FR (occurrence: FR)
  Receive Date: 20150128
  Receipt Date: 20150128
  Transmission Date: 20150721
  Serious: Yes (Other)
  Sender: FDA-Public Use
  Company Number: FR-MERCK-1501FRA009406

PATIENT
  Age: 87 Year
  Sex: Male

DRUGS (3)
  1. PREVISCAN [Concomitant]
     Active Substance: FLUINDIONE
  2. INVANZ [Suspect]
     Active Substance: ERTAPENEM SODIUM
     Indication: SEPTIC SHOCK
     Dosage: 1 G, QD
     Route: 042
     Dates: start: 20141112, end: 20141122
  3. GENTAMICIN SULFATE. [Concomitant]
     Active Substance: GENTAMICIN SULFATE
     Indication: SEPTIC SHOCK
     Dosage: UNK
     Dates: start: 20141112

REACTIONS (3)
  - Disorientation [Recovered/Resolved]
  - Drug level above therapeutic [Recovered/Resolved]
  - Confusional state [Recovered/Resolved]

NARRATIVE: CASE EVENT DATE: 20141114
